FAERS Safety Report 10984321 (Version 1)
Quarter: 2015Q1

REPORT INFORMATION
  Report Type: Spontaneous
  Country: US (occurrence: None)
  Receive Date: 20150226
  Receipt Date: 20150226
  Transmission Date: 20150721
  Serious: Yes (Other)
  Sender: FDA-Public Use
  Company Number: TPA2013A05752

PATIENT
  Age: 63 Year
  Sex: Male
  Weight: 88.5 kg

DRUGS (7)
  1. JANUVIA [Concomitant]
     Active Substance: SITAGLIPTIN PHOSPHATE
  2. LISPRO (INSULIN LISPRO) [Concomitant]
  3. ACTOS [Suspect]
     Active Substance: PIOGLITAZONE HYDROCHLORIDE
     Indication: TYPE 2 DIABETES MELLITUS
     Dates: start: 200205, end: 200207
  4. DIABETA [Concomitant]
     Active Substance: GLYBURIDE
  5. LANTUS [Concomitant]
     Active Substance: INSULIN GLARGINE
  6. GLUCOTROL [Concomitant]
     Active Substance: GLIPIZIDE
  7. GLUCOVANCE (GLIBOMET) [Concomitant]

REACTIONS (1)
  - Bladder cancer recurrent [None]

NARRATIVE: CASE EVENT DATE: 20020919
